FAERS Safety Report 20768516 (Version 3)
Quarter: 2022Q4

REPORT INFORMATION
  Report Type: Report from Study
  Country: CA (occurrence: CA)
  Receive Date: 20220429
  Receipt Date: 20221013
  Transmission Date: 20230113
  Serious: Yes (Other)
  Sender: FDA-Public Use
  Company Number: CA-JNJFOC-20160826509

PATIENT
  Age: 57 Year
  Sex: Female

DRUGS (2)
  1. REMICADE [Suspect]
     Active Substance: INFLIXIMAB
     Indication: Colitis ulcerative
     Dosage: ON 25-AUG-2016, PATIENT RECEIVED 17TH INFLIXIMAB RECOMBINANT INFUSION OF 300MG AND PARTIAL MAYO SURV
     Route: 042
     Dates: start: 20140417
  2. REMICADE [Suspect]
     Active Substance: INFLIXIMAB
     Indication: Crohn^s disease
     Route: 042
     Dates: start: 20160825

REACTIONS (6)
  - Clostridium difficile infection [Unknown]
  - Frequent bowel movements [Unknown]
  - Rash [Unknown]
  - Drug ineffective [Unknown]
  - Condition aggravated [Unknown]
  - Adverse event [Unknown]

NARRATIVE: CASE EVENT DATE: 20160824
